FAERS Safety Report 9138000 (Version 1)
Quarter: 2013Q1

REPORT INFORMATION
  Report Type: Spontaneous
  Country: AU (occurrence: AU)
  Receive Date: 20130304
  Receipt Date: 20130304
  Transmission Date: 20140127
  Serious: Yes (Other)
  Sender: FDA-Public Use
  Company Number: PHHY2013AU019372

PATIENT
  Age: 68 Year
  Sex: Male

DRUGS (2)
  1. CIPROFLOXACIN [Suspect]
     Route: 048
  2. MICARDIS [Concomitant]

REACTIONS (3)
  - Loss of consciousness [Unknown]
  - Joint swelling [Unknown]
  - Sleep disorder [Unknown]
